FAERS Safety Report 12110751 (Version 1)
Quarter: 2016Q1

REPORT INFORMATION
  Report Type: Spontaneous
  Country: US (occurrence: US)
  Receive Date: 20160224
  Receipt Date: 20160224
  Transmission Date: 20160526
  Serious: No
  Sender: FDA-Public Use
  Company Number: US-JAZZ-2015-US-002973

PATIENT
  Sex: Female

DRUGS (4)
  1. HYDROMORPHONE HCL [Suspect]
     Active Substance: HYDROMORPHONE HYDROCHLORIDE
     Indication: PAIN
     Dosage: UNK MG, UNK
     Route: 037
  2. BUPIVACAINE HYDROCHLORIDE. [Suspect]
     Active Substance: BUPIVACAINE HYDROCHLORIDE
     Indication: PAIN
     Dosage: UNK MG, UNK
     Route: 037
  3. PRIALT [Suspect]
     Active Substance: ZICONOTIDE ACETATE
     Indication: PAIN
     Dosage: UNK ?G, QH
     Route: 037
  4. IMMUNOGLOBULIN G HUMAN [Suspect]
     Active Substance: HUMAN IMMUNOGLOBULIN G
     Indication: PARKINSON^S DISEASE

REACTIONS (2)
  - Hallucination [Recovered/Resolved]
  - Hallucination, visual [Recovered/Resolved]
